FAERS Safety Report 7296426-1 (Version None)
Quarter: 2011Q1

REPORT INFORMATION
  Report Type: 
  Country: None (occurrence: None)
  Receive Date: 20110216
  Receipt Date: 20110210
  Transmission Date: 20110831
  Serious: Yes (Other)
  Sender: FDA-Public Use
  Company Number: US-BRISTOL-MYERS SQUIBB COMPANY-15514896

PATIENT
  Age: 83 Year
  Sex: Male

DRUGS (6)
  1. PLAVIX [Concomitant]
  2. AMLODIPINE [Concomitant]
  3. LIPITOR [Concomitant]
  4. COUMADIN [Suspect]
  5. HYDROCHLOROTHIAZIDE [Concomitant]
  6. ENALAPRIL [Concomitant]

REACTIONS (3)
  - CEREBROVASCULAR ACCIDENT [None]
  - INTERNATIONAL NORMALISED RATIO FLUCTUATION [None]
  - NASOPHARYNGITIS [None]
